FAERS Safety Report 18475011 (Version 1)
Quarter: 2020Q4

REPORT INFORMATION
  Report Type: Spontaneous
  Country: GB (occurrence: GB)
  Receive Date: 20201106
  Receipt Date: 20201106
  Transmission Date: 20210114
  Serious: Yes (Disabling, Other)
  Sender: FDA-Public Use
  Company Number: GB-JNJFOC-20201051289

PATIENT
  Age: 50 Year
  Sex: Male
  Weight: 102.51 kg

DRUGS (1)
  1. RISPERDAL [Suspect]
     Active Substance: RISPERIDONE
     Indication: SCHIZOPHRENIA
     Route: 048
     Dates: start: 20150110

REACTIONS (9)
  - Muscle spasticity [Not Recovered/Not Resolved]
  - Rash [Not Recovered/Not Resolved]
  - Lethargy [Unknown]
  - Decreased interest [Not Recovered/Not Resolved]
  - Stridor [Not Recovered/Not Resolved]
  - Obesity [Not Recovered/Not Resolved]
  - Blindness transient [Not Recovered/Not Resolved]
  - Peroneal nerve palsy [Not Recovered/Not Resolved]
  - Nystagmus [Not Recovered/Not Resolved]

NARRATIVE: CASE EVENT DATE: 2018
